FAERS Safety Report 7786149-4 (Version None)
Quarter: 2011Q3

REPORT INFORMATION
  Report Type: 
  Country: None (occurrence: None)
  Receive Date: 20110929
  Receipt Date: 20110928
  Transmission Date: 20111222
  Serious: Yes (Other)
  Sender: FDA-Public Use
  Company Number: FR-PFIZER INC-2010112152

PATIENT
  Age: 29 Year
  Sex: Female

DRUGS (9)
  1. ATARAX [Suspect]
     Dosage: 300 MG, DAILY
     Route: 048
     Dates: start: 20100723, end: 20100813
  2. EFFEXOR [Suspect]
     Dosage: 375 MG, UNK
     Route: 048
     Dates: start: 20100723, end: 20100813
  3. IMOVANE [Concomitant]
     Dosage: 1 TO 2 TABLETS AT NIGHT
  4. EFFEXOR [Suspect]
     Dosage: 225 MG, UNK
     Route: 048
     Dates: start: 20100818
  5. MIRTAZAPINE [Suspect]
     Dosage: 2 DF, 2X/DAY
     Route: 048
     Dates: start: 20100723, end: 20100813
  6. DIAZEPAM [Concomitant]
     Dosage: 5 MG, 1X/DAY
     Dates: start: 20100723
  7. MIRTAZAPINE [Suspect]
     Dosage: 2 DF, 2X/DAY
     Route: 048
     Dates: start: 20100818
  8. SERTRALINE [Concomitant]
     Dosage: 1 DF, 1X/DAY
  9. LEXOMIL [Concomitant]
     Dosage: 3/4 OF TABLET PER DAY

REACTIONS (2)
  - SPEECH DISORDER [None]
  - DYSARTHRIA [None]
